FAERS Safety Report 24037617 (Version 2)
Quarter: 2024Q3

REPORT INFORMATION
  Report Type: Spontaneous
  Country: CN (occurrence: CN)
  Receive Date: 20240702
  Receipt Date: 20240723
  Transmission Date: 20241017
  Serious: Yes (Other)
  Sender: AMGEN
  Company Number: CN-AMGEN-CHNSP2024128043

PATIENT
  Age: 3 Year
  Sex: Male
  Weight: 11.6 kg

DRUGS (11)
  1. RAVICTI [Suspect]
     Active Substance: GLYCEROL PHENYLBUTYRATE
     Indication: Argininosuccinate synthetase deficiency
     Dosage: 1.2 MILLILITER, (FIRST DOSE)
     Route: 048
     Dates: start: 20240611
  2. RAVICTI [Suspect]
     Active Substance: GLYCEROL PHENYLBUTYRATE
     Dosage: 1.6 MILLILITER (SECOND DOSE)
     Route: 048
     Dates: start: 20240611, end: 20240611
  3. SODIUM PHENYLBUTYRATE [Concomitant]
     Active Substance: SODIUM PHENYLBUTYRATE
     Dosage: 1.68 GRAM
     Route: 048
     Dates: start: 20240604
  4. SODIUM PHENYLBUTYRATE [Concomitant]
     Active Substance: SODIUM PHENYLBUTYRATE
     Dosage: 1.68 GRAM, QID
     Route: 048
     Dates: start: 20240611
  5. SODIUM PHENYLBUTYRATE [Concomitant]
     Active Substance: SODIUM PHENYLBUTYRATE
     Dosage: 8.4 GRAM, QD
     Route: 048
  6. Mouse nerve growth factor [Concomitant]
     Dosage: 18 MICROGRAM, QD
     Route: 065
  7. LIGUSTRAZINE [Concomitant]
     Active Substance: LIGUSTRAZINE
     Dosage: 15 MILLIGRAM, QD
     Route: 065
  8. LEVOCARNITINE [Concomitant]
     Active Substance: LEVOCARNITINE
     Dosage: 4 MILLILITER, TID
     Route: 065
  9. ARGININE [Concomitant]
     Active Substance: ARGININE
     Dosage: 2.55 GRAM, QID
     Route: 042
  10. VITAMIN B1 [Concomitant]
     Active Substance: THIAMINE HYDROCHLORIDE
     Dosage: UNK
     Route: 065
  11. ADENOSINE TRIPHOSPHATE DISODIUM [Concomitant]
     Active Substance: ADENOSINE TRIPHOSPHATE DISODIUM
     Dosage: 20 MILLIGRAM, TID
     Route: 065

REACTIONS (3)
  - Depressed level of consciousness [Recovering/Resolving]
  - Ammonia increased [Recovering/Resolving]
  - Somnolence [Recovering/Resolving]

NARRATIVE: CASE EVENT DATE: 20240611
